FAERS Safety Report 4823342-4 (Version None)
Quarter: 2005Q4

REPORT INFORMATION
  Report Type: 
  Country: None (occurrence: None)
  Receive Date: 20051107
  Receipt Date: 20051024
  Transmission Date: 20060501
  Serious: Yes (Other)
  Sender: FDA-Public Use
  Company Number: 2005BH002613

PATIENT
  Age: 51 Year
  Sex: Female

DRUGS (4)
  1. PHENYTOIN [Suspect]
     Indication: CONVULSION
     Dosage: 200MG;EVERY DAY;PO
     Route: 048
  2. CYCLOPHOSPHAMIDE [Suspect]
     Indication: METASTASIS
     Dosage: 100 MG;EVERY DAY
  3. DOXIFLURIDINE (DOXIFLURIDINE) [Suspect]
     Indication: METASTASIS
     Dosage: 800 MG;EVERY DAY
  4. MEDROXYPROGESTERONE [Suspect]
     Indication: METASTASIS
     Dosage: 800 MG;EVERY DAY

REACTIONS (2)
  - ANTICONVULSANT DRUG LEVEL INCREASED [None]
  - GAIT DISTURBANCE [None]
